FAERS Safety Report 9844789 (Version 1)
Quarter: 2014Q1

REPORT INFORMATION
  Report Type: Spontaneous
  Country: US (occurrence: None)
  Receive Date: 20140122
  Receipt Date: 20140122
  Transmission Date: 20141002
  Serious: Yes (Death)
  Sender: FDA-Public Use
  Company Number: B0960478A

PATIENT
  Age: 55 Year
  Sex: Female

DRUGS (6)
  1. LAMOTRIGINE [Suspect]
     Route: 048
  2. PARACETAMOL [Suspect]
     Route: 048
  3. DIAMORPHINE HYDROCHLORIDE [Suspect]
     Route: 048
  4. OXYCODONE [Suspect]
     Route: 048
  5. COCAINE [Suspect]
     Route: 048
  6. SERTRALINE [Suspect]
     Route: 048

REACTIONS (1)
  - Drug abuse [None]
